FAERS Safety Report 4322031-2 (Version None)
Quarter: 2004Q1

REPORT INFORMATION
  Report Type: 
  Country: None (occurrence: None)
  Receive Date: 20040319
  Receipt Date: 20040309
  Transmission Date: 20041129
  Serious: Yes (Hospitalization)
  Sender: FDA-Public Use
  Company Number: US-JNJFOC-20040302660

PATIENT
  Sex: Female

DRUGS (1)
  1. ORTH TRI-CYCLEN LO TABLETS (NORGESTIMATE/ETHINYL ESTRADIOL) [Suspect]
     Indication: CONTRACEPTION
     Dosage: 1 DOSE(S), 1 IN 1 DAY, ORAL
     Route: 048

REACTIONS (2)
  - AMENORRHOEA [None]
  - MALAISE [None]
